FAERS Safety Report 9506266 (Version 1)
Quarter: 2013Q1

REPORT INFORMATION
  Report Type: Spontaneous
  Country: US (occurrence: None)
  Receive Date: 20130305
  Receipt Date: 20130305
  Transmission Date: 20140127
  Serious: Yes (Other)
  Sender: FDA-Public Use
  Company Number: 163-21880-12050201

PATIENT
  Age: 70 Year
  Sex: Male

DRUGS (2)
  1. REVLIMID (LENALIDOMIDE) (25 MILLIGRAM, CAPSULES) [Suspect]
     Indication: PLASMA CELL MYELOMA
     Dosage: 25 MG, 1 IN 1 , PO?
     Route: 048
     Dates: start: 201108
  2. DEXAMETHASONE (DEXAMETHASONE) [Concomitant]

REACTIONS (3)
  - Neutrophil count decreased [None]
  - Platelet count decreased [None]
  - White blood cell count decreased [None]
